FAERS Safety Report 19665363 (Version 2)
Quarter: 2021Q3

REPORT INFORMATION
  Report Type: Spontaneous
  Country: US (occurrence: US)
  Receive Date: 20210805
  Receipt Date: 20210805
  Transmission Date: 20211014
  Serious: No
  Sender: FDA-Public Use
  Company Number: US-ROCHE-2831102

PATIENT
  Sex: Male

DRUGS (2)
  1. GAVRETO [Suspect]
     Active Substance: PRALSETINIB
     Indication: LUNG NEOPLASM MALIGNANT
     Route: 065
     Dates: start: 20210430
  2. OXYCODONE [Concomitant]
     Active Substance: OXYCODONE

REACTIONS (8)
  - Stomatitis [Unknown]
  - Peripheral swelling [Unknown]
  - Pruritus [Unknown]
  - Dyspnoea [Unknown]
  - Insomnia [Unknown]
  - Erythema [Unknown]
  - Constipation [Unknown]
  - Oral pain [Unknown]
